FAERS Safety Report 6480598-2 (Version None)
Quarter: 2009Q4

REPORT INFORMATION
  Report Type: 
  Country: None (occurrence: None)
  Receive Date: 20091208
  Receipt Date: 20091130
  Transmission Date: 20100525
  Serious: Yes (Other)
  Sender: FDA-Public Use
  Company Number: US-PFIZER INC-2009216545

PATIENT
  Sex: Female
  Weight: 90.718 kg

DRUGS (3)
  1. CHANTIX [Suspect]
     Indication: SMOKING CESSATION THERAPY
     Dosage: 1 MG, 2X/DAY
     Route: 048
     Dates: start: 20090108, end: 20090215
  2. PROZAC [Concomitant]
     Indication: DEPRESSION
     Dosage: UNK
  3. LISINOPRIL [Concomitant]
     Indication: HYPERTENSION
     Dosage: UNK

REACTIONS (12)
  - ANAPHYLACTIC REACTION [None]
  - CONFUSIONAL STATE [None]
  - DEMENTIA [None]
  - FEAR [None]
  - HEARING IMPAIRED [None]
  - HYPERSENSITIVITY [None]
  - MEMORY IMPAIRMENT [None]
  - MENTAL IMPAIRMENT [None]
  - PHARYNGEAL OEDEMA [None]
  - PSYCHOTIC DISORDER [None]
  - SUICIDAL IDEATION [None]
  - VISUAL ACUITY REDUCED [None]
